FAERS Safety Report 5118198-9 (Version None)
Quarter: 2006Q3

REPORT INFORMATION
  Report Type: 
  Country: None (occurrence: None)
  Receive Date: 20060927
  Receipt Date: 20060925
  Transmission Date: 20061208
  Serious: Yes (Other)
  Sender: FDA-Public Use
  Company Number: 2006US-03871

PATIENT
  Age: 20 Year
  Sex: 0

DRUGS (1)
  1. ISOTRETINOIN [Suspect]
     Dosage: 30 MG, BID
     Dates: start: 20060515, end: 20060615

REACTIONS (2)
  - ANAEMIA [None]
  - HAEMATOCHEZIA [None]
